FAERS Safety Report 6818125-X (Version None)
Quarter: 2010Q3

REPORT INFORMATION
  Report Type: 
  Country: None (occurrence: None)
  Receive Date: 20100706
  Receipt Date: 20100702
  Transmission Date: 20110219
  Serious: Yes (Death, Hospitalization)
  Sender: FDA-Public Use
  Company Number: FR-WYE-G06352410

PATIENT
  Sex: Male

DRUGS (4)
  1. TAZOCILLINE [Suspect]
     Dosage: UNKNOWN
     Route: 042
     Dates: start: 20100326, end: 20100328
  2. VITAMIN B1 AND B6 [Suspect]
     Dosage: UNKNOWN
     Route: 048
     Dates: start: 20100319, end: 20100323
  3. VITAMIN B1 AND B6 [Suspect]
     Dosage: UNKNOWN
     Route: 048
     Dates: start: 20100326
  4. ZYVOXID [Suspect]
     Dosage: UNKNOWN
     Route: 048
     Dates: start: 20100225, end: 20100327

REACTIONS (2)
  - MULTI-ORGAN FAILURE [None]
  - RASH MORBILLIFORM [None]
